FAERS Safety Report 6115709-1 (Version None)
Quarter: 2009Q1

REPORT INFORMATION
  Report Type: 
  Country: None (occurrence: None)
  Receive Date: 20090313
  Receipt Date: 20090305
  Transmission Date: 20090719
  Serious: No
  Sender: FDA-Public Use
  Company Number: US-B.I. PHARMACEUTICALS,INC./RIDGEFIELD-2009-BP-01741BP

PATIENT
  Age: 44 Year
  Sex: Male
  Weight: 83 kg

DRUGS (3)
  1. MICARDIS [Suspect]
     Indication: HYPERTENSION
     Dosage: 40MG
     Dates: start: 20070401, end: 20070701
  2. LORAZEPAM [Concomitant]
     Dates: start: 20060101
  3. VICOPROFEN [Concomitant]
     Dates: start: 20070101

REACTIONS (1)
  - PARAESTHESIA [None]
